FAERS Safety Report 16372690 (Version 1)
Quarter: 2019Q2

REPORT INFORMATION
  Report Type: Spontaneous
  Country: ES (occurrence: ES)
  Receive Date: 20190530
  Receipt Date: 20190530
  Transmission Date: 20190711
  Serious: Yes (Other)
  Sender: FDA-Public Use
  Company Number: ES-ROCHE-2326333

PATIENT
  Age: 13 Year
  Sex: Female

DRUGS (5)
  1. BENZENE [Suspect]
     Active Substance: BENZENE
     Indication: PRODUCT USED FOR UNKNOWN INDICATION
     Route: 065
  2. XYLENE [Suspect]
     Active Substance: XYLENE
     Indication: PRODUCT USED FOR UNKNOWN INDICATION
     Route: 065
  3. NORDIAZEPAM [Suspect]
     Active Substance: NORDAZEPAM
     Indication: PRODUCT USED FOR UNKNOWN INDICATION
     Route: 065
  4. SOLVENTS AND DILUTING AGENTS, INCL. IRRIGATING SOLUTIONS [Suspect]
     Active Substance: SODIUM CHLORIDE
     Indication: PRODUCT USED FOR UNKNOWN INDICATION
     Route: 065
  5. DIAZEPAM. [Suspect]
     Active Substance: DIAZEPAM
     Indication: PRODUCT USED FOR UNKNOWN INDICATION
     Route: 065

REACTIONS (5)
  - Sexual abuse [Unknown]
  - Amnesia [Unknown]
  - Confusional state [Unknown]
  - Intentional product misuse [Unknown]
  - Loss of consciousness [Recovered/Resolved]
